FAERS Safety Report 9356176 (Version 2)
Quarter: 2013Q3

REPORT INFORMATION
  Report Type: Spontaneous
  Country: IT (occurrence: IT)
  Receive Date: 20130619
  Receipt Date: 20130703
  Transmission Date: 20140515
  Serious: Yes (Hospitalization, Other)
  Sender: FDA-Public Use
  Company Number: IT-PFIZER INC-2013183110

PATIENT
  Age: 67 Year
  Sex: Male

DRUGS (3)
  1. HALCION [Suspect]
     Indication: ANXIETY
     Dosage: 4 TABLETS IN THE AFTERNOON AND 5 TABLETS IN THE EVENING
     Route: 048
     Dates: start: 20130507, end: 20130507
  2. RAMIPRIL [Suspect]
     Indication: HYPERTENSION
     Dosage: 5 TABLETS OF RAMIPRIL AT 10 MG (5 DF TOTAL)
     Route: 048
     Dates: start: 20130507, end: 20130507
  3. CARDIOASPIRIN [Suspect]
     Indication: THROMBOSIS PROPHYLAXIS
     Dosage: 5 TABLETS
     Route: 048
     Dates: start: 20130507, end: 20130507

REACTIONS (6)
  - Overdose [Recovered/Resolved]
  - Drug abuse [Recovered/Resolved]
  - Sopor [Recovered/Resolved]
  - Somnolence [Recovered/Resolved]
  - Bradycardia [Recovered/Resolved]
  - Breath sounds abnormal [Recovered/Resolved]
